FAERS Safety Report 4976141-7 (Version None)
Quarter: 2006Q2

REPORT INFORMATION
  Report Type: 
  Country: None (occurrence: None)
  Receive Date: 20060411
  Receipt Date: 20060330
  Transmission Date: 20061013
  Serious: Yes (Disabling, Other)
  Sender: FDA-Public Use
  Company Number: OSCN-PR-0602S-0041

PATIENT
  Age: 73 Year
  Sex: Female
  Weight: 62.1428 kg

DRUGS (3)
  1. OMNISCAN [Suspect]
     Indication: TRANSIENT ISCHAEMIC ATTACK
     Dosage: SINGLE DOSE, EXTRAVASATION
     Dates: start: 20051001, end: 20051001
  2. PLAVIX [Concomitant]
  3. DIURETIC (UNSPECIFIED) [Concomitant]

REACTIONS (5)
  - HYPOAESTHESIA [None]
  - INJECTION SITE EXTRAVASATION [None]
  - INJECTION SITE PAIN [None]
  - MUSCULAR WEAKNESS [None]
  - NEUROPATHY PERIPHERAL [None]
